FAERS Safety Report 24703055 (Version 1)
Quarter: 2024Q4

REPORT INFORMATION
  Report Type: Spontaneous
  Country: US (occurrence: US)
  Receive Date: 20241205
  Receipt Date: 20241205
  Transmission Date: 20250115
  Serious: Yes (Other)
  Sender: PFIZER
  Company Number: US-PFIZER INC-PV202400155831

PATIENT
  Age: 75 Year
  Sex: Male
  Weight: 94.694 kg

DRUGS (20)
  1. ALDACTONE [Suspect]
     Active Substance: SPIRONOLACTONE
     Dosage: 25 MG, DAILY
     Route: 048
     Dates: start: 20240918, end: 20241028
  2. ROSUVASTATIN [Concomitant]
     Active Substance: ROSUVASTATIN
     Dosage: 20 MG, DAILY (EVERY DAY IN THE EVENING)
     Route: 048
     Dates: start: 20241003, end: 20241007
  3. MUPIROCIN [Concomitant]
     Active Substance: MUPIROCIN
     Dosage: PEA SIZED AMOUNT TO BOTH NOSTRILS (TWICE DAILY FOR 5 DAYS PRIOR TO PROCEDURE INCLUDING MORNING OF)
     Dates: start: 20240826, end: 20241107
  4. ACETAMINOPHEN [Concomitant]
     Active Substance: ACETAMINOPHEN
     Indication: Pain
     Dosage: TAKE1 TABLET (500 MG) BY MOUTH EVERY 6 (SIX) HOURS AS NEEDED)
     Route: 048
     Dates: start: 20240918, end: 20241107
  5. ALBUTEROL [Concomitant]
     Active Substance: ALBUTEROL
     Indication: Dyspnoea
     Dosage: INHALE 2 PUFFS EVERY 6 (SIX) HOURS AS NEEDED)
     Dates: start: 20240801
  6. AMIODARONE [Concomitant]
     Active Substance: AMIODARONE
     Dosage: 200 MG, DAILY
     Route: 048
     Dates: start: 20240123, end: 20241007
  7. APIXABAN [Concomitant]
     Active Substance: APIXABAN
     Indication: Anticoagulant therapy
     Dosage: 5 MG, 2X/DAY
     Route: 048
     Dates: start: 20240920, end: 20241119
  8. CARBAMIDE PEROXIDE [Concomitant]
     Active Substance: CARBAMIDE PEROXIDE
     Dosage: 5 DROP INTO BOTH EARS, 2X/DAY
     Dates: start: 20240411, end: 20241107
  9. CEPHALEXIN [Concomitant]
     Active Substance: CEPHALEXIN
     Dosage: 500 MG, 3X/DAY
     Route: 048
     Dates: start: 20240919, end: 20240922
  10. CYCLOBENZAPRINE [Concomitant]
     Active Substance: CYCLOBENZAPRINE
     Indication: Muscle spasms
     Dosage: 5 MG, 3X/DAY (AS NEEDED)
     Route: 048
     Dates: start: 20230111
  11. DICLOFENAC SODIUM [Concomitant]
     Active Substance: DICLOFENAC SODIUM
     Dosage: APPLY 1-2 G, 2X/DAY
     Route: 061
     Dates: start: 20240226
  12. EMPAGLIFLOZIN [Concomitant]
     Active Substance: EMPAGLIFLOZIN
     Dosage: 10 MG, DAILY
     Route: 048
     Dates: start: 20240607
  13. FUROSEMIDE [Concomitant]
     Active Substance: FUROSEMIDE
     Indication: Weight increased
     Dosage: 40 MG, 2X/DAY (AS NEEDED)
     Route: 048
  14. GLIPIZIDE\METFORMIN HYDROCHLORIDE [Concomitant]
     Active Substance: GLIPIZIDE\METFORMIN HYDROCHLORIDE
     Dosage: 1 DF, DAILY
     Route: 048
     Dates: start: 20240729
  15. LATANOPROST [Concomitant]
     Active Substance: LATANOPROST
     Dosage: 1 DROP, BOTH EYES AT BEDTIME DAILY
     Dates: start: 20231220
  16. METOPROLOL SUCCINATE [Concomitant]
     Active Substance: METOPROLOL SUCCINATE
     Dosage: 25 MG, DAILY
     Route: 048
     Dates: start: 20240123, end: 20241010
  17. TAFAMIDIS MEGLUMINE [Concomitant]
     Active Substance: TAFAMIDIS MEGLUMINE
     Dosage: 80 MG, DAILY
     Route: 048
     Dates: start: 20240606, end: 20241004
  18. CENTRUM SILVER MULTIVITAMIN MULTIMINERAL PLUS LUTEIN + LYCOPENE [Concomitant]
     Dosage: 0.4-300-250 MG-MCG-MCG, TAKE 1 TABLET
     Route: 048
     Dates: start: 20161109
  19. VITAMIN A [Concomitant]
     Active Substance: VITAMIN A
     Dosage: 10000 IU, DAILY
     Route: 048
  20. VUTRISIRAN [Concomitant]
     Active Substance: VUTRISIRAN
     Dosage: 25 MG/0.5 ML SYR
     Route: 058

REACTIONS (5)
  - Cardiac pacemaker insertion [Unknown]
  - Type V hyperlipidaemia [Unknown]
  - Bundle branch block left [Unknown]
  - Heart failure with reduced ejection fraction [Unknown]
  - Blood creatinine increased [Unknown]
